FAERS Safety Report 8831916 (Version 1)
Quarter: 2012Q4

REPORT INFORMATION
  Report Type: 
  Country: DE (occurrence: DE)
  Receive Date: 20121009
  Receipt Date: 20121009
  Transmission Date: 20130627
  Serious: Yes (Hospitalization, Other)
  Sender: FDA-Public Use
  Company Number: DE-BAYER-2012-104491

PATIENT
  Sex: Male

DRUGS (6)
  1. ASPIRIN PROTECT 100 [Suspect]
     Dosage: no daily intake
  2. SIMVASTATIN [Interacting]
     Dosage: UNK
     Dates: end: 20120831
  3. INEGY [Concomitant]
     Dosage: UNK
     Dates: start: 20120901, end: 20120914
  4. BELOC ZOK [Concomitant]
  5. XANEF [Concomitant]
  6. METFORMIN [Concomitant]
     Dosage: UNK

REACTIONS (10)
  - Drug hypersensitivity [Recovered/Resolved]
  - Pruritus [Recovered/Resolved]
  - Urticaria [Recovered/Resolved]
  - Blister [Recovered/Resolved]
  - Pruritus [Recovered/Resolved]
  - Rash macular [Recovered/Resolved]
  - Rash [Recovered/Resolved]
  - Muscle spasms [None]
  - Pancreatitis [None]
  - Lipase increased [None]
